FAERS Safety Report 16493267 (Version 8)
Quarter: 2023Q4

REPORT INFORMATION
  Report Type: Report from Study
  Country: CA (occurrence: None)
  Receive Date: 20190628
  Receipt Date: 20231204
  Transmission Date: 20240110
  Serious: Yes (Other)
  Sender: FDA-Public Use
  Company Number: CA-ORION CORPORATION ORION PHARMA-TREX2019-2044

PATIENT
  Age: 62 Year
  Sex: Male

DRUGS (32)
  1. METHOTREXATE [Suspect]
     Active Substance: METHOTREXATE
     Indication: Product used for unknown indication
  2. METHOTREXATE [Suspect]
     Active Substance: METHOTREXATE
  3. METHOTREXATE [Suspect]
     Active Substance: METHOTREXATE
  4. METHOTREXATE [Suspect]
     Active Substance: METHOTREXATE
  5. ENTYVIO [Suspect]
     Active Substance: VEDOLIZUMAB
     Indication: Crohn^s disease
  6. ENTYVIO [Suspect]
     Active Substance: VEDOLIZUMAB
     Dosage: 1 CYCLIC
  7. ENTYVIO [Suspect]
     Active Substance: VEDOLIZUMAB
     Dosage: 1 CYCLIC
  8. ENTYVIO [Suspect]
     Active Substance: VEDOLIZUMAB
     Dosage: 1 CYCLIC
  9. ENTYVIO [Suspect]
     Active Substance: VEDOLIZUMAB
     Dosage: 1 CYCLIC
  10. ENTYVIO [Suspect]
     Active Substance: VEDOLIZUMAB
     Dosage: 1 CYCLIC
  11. ENTYVIO [Suspect]
     Active Substance: VEDOLIZUMAB
     Dosage: 1 CYCLIC
  12. PREDNISONE [Suspect]
     Active Substance: PREDNISONE
     Indication: Product used for unknown indication
  13. ATORVASTATIN CALCIUM [Suspect]
     Active Substance: ATORVASTATIN CALCIUM
     Indication: Product used for unknown indication
  14. CANDESARTAN CILEXETIL [Suspect]
     Active Substance: CANDESARTAN CILEXETIL
     Indication: Product used for unknown indication
  15. ESOMEPRAZOLE MAGNESIUM [Suspect]
     Active Substance: ESOMEPRAZOLE\ESOMEPRAZOLE MAGNESIUM\ESOMEPRAZOLE MAGNESIUM DIHYDRATE
     Indication: Product used for unknown indication
  16. ESOMEPRAZOLE MAGNESIUM [Suspect]
     Active Substance: ESOMEPRAZOLE\ESOMEPRAZOLE MAGNESIUM\ESOMEPRAZOLE MAGNESIUM DIHYDRATE
  17. CANDESARTAN [Suspect]
     Active Substance: CANDESARTAN
     Indication: Product used for unknown indication
  18. CANDESARTAN [Suspect]
     Active Substance: CANDESARTAN
  19. ENTOCORT [Concomitant]
     Active Substance: BUDESONIDE
  20. ENTOCORT [Concomitant]
     Active Substance: BUDESONIDE
  21. IRON [Concomitant]
     Active Substance: IRON
  22. IRON [Concomitant]
     Active Substance: IRON
  23. METHOTREXATE [Concomitant]
     Active Substance: METHOTREXATE
  24. METHOTREXATE [Concomitant]
     Active Substance: METHOTREXATE
  25. METHOTREXATE [Concomitant]
     Active Substance: METHOTREXATE
  26. OLMESARTAN [Concomitant]
     Active Substance: OLMESARTAN
  27. CARVEDILOL [Concomitant]
     Active Substance: CARVEDILOL
  28. IBUPROFEN [Concomitant]
     Active Substance: IBUPROFEN
  29. LEUCOVORIN [Concomitant]
     Active Substance: LEUCOVORIN\LEUCOVORIN CALCIUM
  30. SOLU-CORTEF [Concomitant]
     Active Substance: HYDROCORTISONE SODIUM SUCCINATE
     Indication: Premedication
  31. XELJANZ [Concomitant]
     Active Substance: TOFACITINIB CITRATE
  32. LEUCOVORIN CALCIUM [Concomitant]
     Active Substance: LEUCOVORIN CALCIUM

REACTIONS (16)
  - Drug ineffective [Not Recovered/Not Resolved]
  - Abdominal discomfort [Not Recovered/Not Resolved]
  - Arthralgia [Not Recovered/Not Resolved]
  - Cataract [Not Recovered/Not Resolved]
  - Fatigue [Not Recovered/Not Resolved]
  - Nausea [Not Recovered/Not Resolved]
  - Polyp [Not Recovered/Not Resolved]
  - Vision blurred [Not Recovered/Not Resolved]
  - Asthenia [Not Recovered/Not Resolved]
  - Blood iron decreased [Not Recovered/Not Resolved]
  - Diarrhoea [Not Recovered/Not Resolved]
  - Large intestine polyp [Not Recovered/Not Resolved]
  - Nipple pain [Not Recovered/Not Resolved]
  - Nipple swelling [Not Recovered/Not Resolved]
  - Off label use [Not Recovered/Not Resolved]
  - Inappropriate schedule of product administration [Unknown]
